FAERS Safety Report 11882960 (Version 1)
Quarter: 2015Q4

REPORT INFORMATION
  Report Type: Spontaneous
  Country: US (occurrence: US)
  Receive Date: 20151231
  Receipt Date: 20151231
  Transmission Date: 20160305
  Serious: No
  Sender: FDA-Public Use
  Company Number: US-ASTRAZENECA-2015SF29160

PATIENT
  Sex: Male

DRUGS (1)
  1. BRILINTA [Suspect]
     Active Substance: TICAGRELOR
     Indication: ACUTE CORONARY SYNDROME
     Route: 048

REACTIONS (6)
  - Dysentery [Unknown]
  - Cough [Unknown]
  - Diarrhoea [Unknown]
  - Eructation [Unknown]
  - Nasopharyngitis [Unknown]
  - Nausea [Unknown]
